FAERS Safety Report 16335223 (Version 1)
Quarter: 2019Q2

REPORT INFORMATION
  Report Type: Spontaneous
  Country: NG (occurrence: NG)
  Receive Date: 20190521
  Receipt Date: 20190521
  Transmission Date: 20190711
  Serious: Yes (Hospitalization, Other)
  Sender: FDA-Public Use
  Company Number: NG-IPCA LABORATORIES LIMITED-IPC-2019-NG-000571

PATIENT

DRUGS (2)
  1. CODEINE [Concomitant]
     Active Substance: CODEINE
     Indication: PRODUCT USED FOR UNKNOWN INDICATION
     Dosage: UNK
     Route: 065
  2. TRAMADOL HYDROCHLORIDE TABLET [Suspect]
     Active Substance: TRAMADOL HYDROCHLORIDE
     Indication: PRODUCT USED FOR UNKNOWN INDICATION
     Dosage: 1000 MG, QD
     Route: 065

REACTIONS (6)
  - Insomnia [Recovered/Resolved]
  - Intentional product misuse [Unknown]
  - Incoherent [Recovered/Resolved]
  - Prescription drug used without a prescription [Unknown]
  - Restlessness [Recovered/Resolved]
  - Depressed level of consciousness [Recovered/Resolved]
